FAERS Safety Report 7305072-2 (Version None)
Quarter: 2011Q1

REPORT INFORMATION
  Report Type: 
  Country: None (occurrence: None)
  Receive Date: 20110222
  Receipt Date: 20110209
  Transmission Date: 20110831
  Serious: Yes (Death)
  Sender: FDA-Public Use
  Company Number: US-CELGENEUS-163-21880-11021281

PATIENT
  Sex: Male

DRUGS (4)
  1. REVLIMID [Suspect]
     Indication: MULTIPLE MYELOMA
     Route: 048
     Dates: start: 20100513
  2. REVLIMID [Suspect]
     Route: 048
     Dates: start: 20101001
  3. REVLIMID [Suspect]
     Route: 048
     Dates: start: 20110101
  4. REVLIMID [Suspect]
     Route: 048
     Dates: start: 20100601

REACTIONS (2)
  - CARDIAC ARREST [None]
  - CARDIAC FAILURE [None]
